FAERS Safety Report 8689364 (Version 2)
Quarter: 2013Q1

REPORT INFORMATION
  Report Type: Spontaneous
  Country: US (occurrence: US)
  Receive Date: 20120727
  Receipt Date: 20130326
  Transmission Date: 20140127
  Serious: Yes (Other)
  Sender: FDA-Public Use
  Company Number: US-ASTRAZENECA-2012SE00969

PATIENT
  Age: 57 Year
  Sex: Male

DRUGS (15)
  1. SEROQUEL [Suspect]
     Indication: SLEEP DISORDER
     Route: 048
  2. SEROQUEL [Suspect]
     Indication: DEPRESSION
     Route: 048
  3. SEROQUEL [Suspect]
     Indication: SERUM SEROTONIN DECREASED
     Route: 048
  4. SEROQUEL [Suspect]
     Indication: SLEEP DISORDER
     Dosage: 100 MG , 1-2 TABLETS PER NIGHT / DAILY
     Route: 048
  5. SEROQUEL [Suspect]
     Indication: DEPRESSION
     Dosage: 100 MG , 1-2 TABLETS PER NIGHT / DAILY
     Route: 048
  6. SEROQUEL [Suspect]
     Indication: SERUM SEROTONIN DECREASED
     Dosage: 100 MG , 1-2 TABLETS PER NIGHT / DAILY
     Route: 048
  7. SEROQUEL [Suspect]
     Indication: SLEEP DISORDER
     Route: 048
  8. SEROQUEL [Suspect]
     Indication: DEPRESSION
     Route: 048
  9. SEROQUEL [Suspect]
     Indication: SERUM SEROTONIN DECREASED
     Route: 048
  10. SEROQUEL [Suspect]
     Indication: SLEEP DISORDER
     Route: 048
  11. SEROQUEL [Suspect]
     Indication: DEPRESSION
     Route: 048
  12. SEROQUEL [Suspect]
     Indication: SERUM SEROTONIN DECREASED
     Route: 048
  13. SEROQUEL [Suspect]
     Indication: SLEEP DISORDER
     Route: 048
  14. SEROQUEL [Suspect]
     Indication: DEPRESSION
     Route: 048
  15. SEROQUEL [Suspect]
     Indication: SERUM SEROTONIN DECREASED
     Route: 048

REACTIONS (5)
  - Paraplegia [Unknown]
  - Insomnia [Unknown]
  - Intentional drug misuse [Unknown]
  - Off label use [Unknown]
  - Drug dose omission [Unknown]
